FAERS Safety Report 14612259 (Version 2)
Quarter: 2018Q1

REPORT INFORMATION
  Report Type: Report from Study
  Country: MX (occurrence: MX)
  Receive Date: 20180308
  Receipt Date: 20180311
  Transmission Date: 20180509
  Serious: Yes (Death, Hospitalization)
  Sender: FDA-Public Use
  Company Number: PHHY2018MX038536

PATIENT
  Sex: Female
  Weight: 73 kg

DRUGS (6)
  1. CIPROFLOXACIN. [Concomitant]
     Active Substance: CIPROFLOXACIN
     Indication: PRODUCT USED FOR UNKNOWN INDICATION
     Dosage: 1.5 DF, BID (EVERY 12 HOURS)
     Route: 048
     Dates: start: 20170818
  2. REVOLADE [Suspect]
     Active Substance: ELTROMBOPAG
     Indication: APLASTIC ANAEMIA
     Dosage: 50 MG, QD (DAILY)
     Route: 048
     Dates: start: 201709
  3. BACTRIM [Concomitant]
     Active Substance: SULFAMETHOXAZOLE\TRIMETHOPRIM
     Indication: PRODUCT USED FOR UNKNOWN INDICATION
     Dosage: 1 DF, QD (EVERY 24 HOURS)
     Route: 048
     Dates: start: 20170818
  4. BEDOYECTA [Concomitant]
     Indication: PRODUCT USED FOR UNKNOWN INDICATION
     Dosage: 1 DF, QD
     Route: 048
     Dates: start: 20170818
  5. METICORTEN [Concomitant]
     Active Substance: PREDNISONE
     Indication: APLASTIC ANAEMIA
     Dosage: 1.5 DF, QD (EVERY 24 HOURS)
     Route: 048
     Dates: start: 20170818
  6. ERYTHROPOIETIN [Concomitant]
     Active Substance: ERYTHROPOIETIN
     Indication: RED BLOOD CELL COUNT ABNORMAL
     Dosage: 4.000 OT, QW (WEEKLY)
     Route: 058
     Dates: start: 20170818

REACTIONS (2)
  - Anaemia [Fatal]
  - Hypovolaemic shock [Fatal]
